FAERS Safety Report 12711465 (Version 4)
Quarter: 2017Q1

REPORT INFORMATION
  Report Type: Spontaneous
  Country: US (occurrence: US)
  Receive Date: 20160902
  Receipt Date: 20170303
  Transmission Date: 20170428
  Serious: No
  Sender: FDA-Public Use
  Company Number: US-PFIZER INC-2016409286

PATIENT
  Age: 57 Year
  Sex: Female
  Weight: 61.23 kg

DRUGS (4)
  1. LYRICA [Suspect]
     Active Substance: PREGABALIN
     Indication: NEURALGIA
     Dosage: 100 MG, 2X/DAY
  2. LYRICA [Suspect]
     Active Substance: PREGABALIN
     Dosage: 50 MG, 1X/DAY
     Route: 048
     Dates: start: 201608
  3. LYRICA [Suspect]
     Active Substance: PREGABALIN
     Indication: TRIGEMINAL NEURALGIA
     Dosage: 50 MG, 3X/DAY (TID)
     Route: 048
     Dates: start: 201606
  4. KLONOPIN [Concomitant]
     Active Substance: CLONAZEPAM
     Indication: DIZZINESS
     Dosage: 0.5 MG, 1X/DAY

REACTIONS (4)
  - Dizziness [Unknown]
  - Pain [Unknown]
  - Drug dose omission [Unknown]
  - Intentional product misuse [Unknown]

NARRATIVE: CASE EVENT DATE: 20160820
